FAERS Safety Report 21748379 (Version 1)
Quarter: 2022Q4

REPORT INFORMATION
  Report Type: Spontaneous
  Country: US (occurrence: US)
  Receive Date: 20221219
  Receipt Date: 20221219
  Transmission Date: 20230113
  Serious: No
  Sender: FDA-Public Use
  Company Number: US-PFIZER INC-2018193515

PATIENT
  Age: 20 Year
  Sex: Male

DRUGS (9)
  1. XELJANZ [Suspect]
     Active Substance: TOFACITINIB CITRATE
     Indication: Alopecia areata
     Dosage: 5 MG, 2X/DAY
     Route: 048
  2. XELJANZ [Suspect]
     Active Substance: TOFACITINIB CITRATE
     Indication: Alopecia totalis
     Dosage: 15 MG, DAILY  (2 TABLETS IN THE MORNING AND 1 AT NIGHT)
  3. XELJANZ [Suspect]
     Active Substance: TOFACITINIB CITRATE
     Indication: Rheumatoid arthritis
     Dosage: 5 MG, 3X/DAY
  4. XELJANZ [Suspect]
     Active Substance: TOFACITINIB CITRATE
     Dosage: 15 MG, DAILY (DOSING OF 10MG IN THE MORNING AND 5 MG IN THE EVENING)
  5. XELJANZ [Suspect]
     Active Substance: TOFACITINIB CITRATE
     Dosage: 20 MG, DAILY (2 TABLETS IN THE MORNING AND TWO TABLETS AT NIGHT)
  6. XELJANZ [Suspect]
     Active Substance: TOFACITINIB CITRATE
     Dosage: 2 DF, 2X/DAY, (5MG TWO TABLETS TWICE A DAY)
  7. XELJANZ [Suspect]
     Active Substance: TOFACITINIB CITRATE
     Dosage: 4 DF, DAILY, (TAKE FOUR TABLETS A DAY)
  8. XELJANZ [Suspect]
     Active Substance: TOFACITINIB CITRATE
     Dosage: 5 MG, 3X/DAY
  9. XELJANZ [Suspect]
     Active Substance: TOFACITINIB CITRATE
     Dosage: 2X/DAY (10MG AM, 5MG PM)

REACTIONS (4)
  - Drug hypersensitivity [Unknown]
  - Overdose [Unknown]
  - Off label use [Unknown]
  - Off label use [Unknown]
